FAERS Safety Report 7467363-4 (Version None)
Quarter: 2011Q2

REPORT INFORMATION
  Report Type: 
  Country: None (occurrence: None)
  Receive Date: 20110428
  Receipt Date: 20110324
  Transmission Date: 20111010
  Serious: Yes (Other)
  Sender: FDA-Public Use
  Company Number: 023556

PATIENT
  Sex: Female

DRUGS (2)
  1. CIMZIA [Suspect]
     Indication: RHEUMATOID ARTHRITIS
     Dosage: (SUBCUTANEOUS)
     Route: 058
     Dates: start: 20100602
  2. CIMZIA [Suspect]
     Indication: CROHN'S DISEASE
     Dosage: (SUBCUTANEOUS)
     Route: 058
     Dates: start: 20100602

REACTIONS (22)
  - FATIGUE [None]
  - CANDIDIASIS [None]
  - HORDEOLUM [None]
  - ASTHENIA [None]
  - CONTUSION [None]
  - PYREXIA [None]
  - PRURITUS [None]
  - ASTHMA [None]
  - LUNG INFECTION [None]
  - EYE INFECTION [None]
  - TIBIA FRACTURE [None]
  - INSOMNIA [None]
  - UPPER RESPIRATORY TRACT INFECTION [None]
  - UNEVALUABLE EVENT [None]
  - BLISTER [None]
  - HAEMORRHAGE [None]
  - WHITE BLOOD CELL COUNT INCREASED [None]
  - FOOT FRACTURE [None]
  - PATELLA FRACTURE [None]
  - FUNGAL INFECTION [None]
  - SKIN DISORDER [None]
  - ALOPECIA [None]
